FAERS Safety Report 12492569 (Version 1)
Quarter: 2016Q2

REPORT INFORMATION
  Report Type: Spontaneous
  Country: TR (occurrence: TR)
  Receive Date: 20160623
  Receipt Date: 20160623
  Transmission Date: 20160815
  Serious: No
  Sender: FDA-Public Use
  Company Number: TR-SA-2016SA112937

PATIENT
  Age: 40 Year
  Sex: Male
  Weight: 85 kg

DRUGS (3)
  1. ENDOL [Concomitant]
     Active Substance: INDOMETHACIN
     Indication: PAIN
     Dosage: STARTED 15 YEARS AGO AT A DOSE OF 2*2.
     Route: 048
  2. SALAZOPYRIN [Concomitant]
     Active Substance: SULFASALAZINE
     Indication: RHEUMATOID ARTHRITIS
     Dosage: STARTED 3 MONTHS AGO AT A DOSE OF 1*1.
     Route: 048
  3. ARAVA [Suspect]
     Active Substance: LEFLUNOMIDE
     Indication: RHEUMATOID ARTHRITIS
     Dosage: AT A DOSE OF 1*1.
     Route: 048
     Dates: start: 201506

REACTIONS (1)
  - Exposure via father [Unknown]
